FAERS Safety Report 9726158 (Version 1)
Quarter: 2013Q4

REPORT INFORMATION
  Report Type: Spontaneous
  Country: JP (occurrence: JP)
  Receive Date: 20131203
  Receipt Date: 20131203
  Transmission Date: 20140711
  Serious: Yes (Life-Threatening, Hospitalization, Other)
  Sender: FDA-Public Use
  Company Number: JP-ACTAVIS-2013-21600

PATIENT
  Age: 22 Year
  Sex: Female
  Weight: 50 kg

DRUGS (18)
  1. FLUNITRAZEPAM [Suspect]
     Indication: SUICIDE ATTEMPT
     Dosage: 8 MG, TOTAL
     Route: 048
  2. FLUNITRAZEPAM [Suspect]
     Indication: OVERDOSE
  3. TIZANIDINE [Suspect]
     Indication: SUICIDE ATTEMPT
     Dosage: 1 MG, TOTAL
     Route: 048
  4. TIZANIDINE [Suspect]
     Indication: OVERDOSE
  5. TRIAZOLAM (UNKNOWN) [Suspect]
     Indication: SUICIDE ATTEMPT
     Dosage: 7.5 MG, TOTAL
     Route: 048
  6. TRIAZOLAM (UNKNOWN) [Suspect]
     Indication: OVERDOSE
  7. LITHIUM CARBONATE (UNKNOWN) [Suspect]
     Indication: SUICIDE ATTEMPT
     Dosage: 800 MG, TOTAL
     Route: 048
  8. LITHIUM CARBONATE (UNKNOWN) [Suspect]
     Indication: OVERDOSE
  9. ALPRAZOLAM (UNKNOWN) [Suspect]
     Indication: SUICIDE ATTEMPT
     Dosage: 22.4 MG, TOTAL
     Route: 048
  10. ALPRAZOLAM (UNKNOWN) [Suspect]
     Indication: OVERDOSE
  11. ZOPICLONE (UNKNOWN) [Suspect]
     Indication: SUICIDE ATTEMPT
     Dosage: 30 MG, TOTAL
     Route: 048
  12. ZOPICLONE (UNKNOWN) [Suspect]
     Indication: OVERDOSE
  13. LOXOPROFEN [Suspect]
     Indication: SUICIDE ATTEMPT
     Dosage: 240 MG, TOTAL
     Route: 048
  14. LOXOPROFEN [Suspect]
     Indication: OVERDOSE
  15. ETIZOLAM [Suspect]
     Indication: SUICIDE ATTEMPT
     Dosage: 24 MG, TOTAL
     Route: 048
  16. ETIZOLAM [Suspect]
     Indication: OVERDOSE
  17. VEGETAMIN A [Suspect]
     Indication: SUICIDE ATTEMPT
     Dosage: 90 TABLET, TOTAL
     Route: 048
  18. VEGETAMIN A [Suspect]
     Indication: OVERDOSE

REACTIONS (9)
  - Coma [Recovered/Resolved]
  - Dehydration [Unknown]
  - Inflammation [Recovered/Resolved]
  - Pneumonia aspiration [Unknown]
  - Hallucination, visual [Recovered/Resolved]
  - Hallucination, auditory [Recovered/Resolved]
  - Delusion [Recovered/Resolved]
  - Drug withdrawal syndrome [Recovered/Resolved]
  - Overdose [Recovered/Resolved]
